FAERS Safety Report 23232351 (Version 1)
Quarter: 2023Q4

REPORT INFORMATION
  Report Type: Spontaneous
  Country: US (occurrence: US)
  Receive Date: 20231127
  Receipt Date: 20231127
  Transmission Date: 20240110
  Serious: No
  Sender: FDA-Public Use
  Company Number: US-drreddys-SPO/USA/23/0183401

PATIENT
  Age: 19 Year
  Sex: Female

DRUGS (2)
  1. ZENATANE [Suspect]
     Active Substance: ISOTRETINOIN
     Indication: Acne
     Dosage: 28 JULY 2023 02:16:14 PM, 30 AUGUST 2023 10:48:24 AM
  2. ZENATANE [Suspect]
     Active Substance: ISOTRETINOIN
     Dosage: 30 OCTOBER 2023 05:05:47 PM

REACTIONS (1)
  - Adverse drug reaction [Unknown]
